FAERS Safety Report 9337098 (Version 2)
Quarter: 2013Q3

REPORT INFORMATION
  Report Type: Report from Study
  Country: JP (occurrence: JP)
  Receive Date: 20130607
  Receipt Date: 20130906
  Transmission Date: 20140515
  Serious: Yes (Life-Threatening, Hospitalization, Other)
  Sender: FDA-Public Use
  Company Number: JP-AMGEN-JPNCT2013040604

PATIENT
  Age: 75 Year
  Sex: Male
  Weight: 58 kg

DRUGS (24)
  1. DARBEPOETIN ALFA [Suspect]
     Indication: NEPHROGENIC ANAEMIA
     Dosage: 30 MUG, UNK
     Route: 058
     Dates: start: 20110303, end: 20110407
  2. DARBEPOETIN ALFA [Suspect]
     Dosage: 30 MUG, Q4WK
     Route: 058
     Dates: start: 20110506, end: 20110602
  3. DARBEPOETIN ALFA [Suspect]
     Dosage: 30 MUG, QD
     Route: 058
     Dates: start: 20110728, end: 20110728
  4. DARBEPOETIN ALFA [Suspect]
     Dosage: 30 MUG, QD
     Route: 058
     Dates: start: 20110922, end: 20110922
  5. DARBEPOETIN ALFA [Suspect]
     Dosage: 40 MUG, QD
     Route: 058
     Dates: start: 20111117, end: 20111117
  6. DARBEPOETIN ALFA [Suspect]
     Dosage: 30 MUG, Q2MO
     Route: 058
     Dates: start: 20120119, end: 20120913
  7. DARBEPOETIN ALFA [Suspect]
     Dosage: 60 MUG, QD
     Route: 058
     Dates: start: 20121114, end: 20121114
  8. DARBEPOETIN ALFA [Suspect]
     Dosage: 60 MUG, QD
     Route: 058
     Dates: start: 20121208, end: 20121208
  9. DARBEPOETIN ALFA [Suspect]
     Dosage: 30 MUG, QD
     Route: 058
     Dates: start: 20121226, end: 20121226
  10. DARBEPOETIN ALFA [Suspect]
     Dosage: 30 MUG, QD
     Route: 058
     Dates: start: 20130228
  11. SEIBULE [Concomitant]
     Dosage: UNK
     Route: 048
  12. CARDENALIN [Concomitant]
     Dosage: UNK
     Route: 048
  13. AMLODIN [Concomitant]
     Dosage: UNK
     Route: 048
  14. ALFAROL [Concomitant]
     Indication: RENAL ARTERY STENOSIS
     Dosage: UNK
     Route: 048
  15. ZYLORIC [Concomitant]
     Dosage: UNK
     Route: 048
  16. LIPITOR [Concomitant]
     Dosage: UNK
     Route: 048
  17. SHAKUYAKUKANZOTO [Concomitant]
     Dosage: UNK
     Route: 048
  18. BONALON [Concomitant]
     Dosage: UNK
     Route: 048
  19. MUCODYNE [Concomitant]
     Dosage: UNK
     Route: 048
  20. BACTRAMIN [Concomitant]
     Dosage: UNK
     Route: 048
  21. SPIRIVA [Concomitant]
     Dosage: UNK
     Route: 055
  22. ONBREZ [Concomitant]
     Dosage: UNK
     Route: 055
  23. CELECOX [Concomitant]
     Dosage: UNK
     Route: 048
  24. PREDONINE [Concomitant]
     Dosage: UNK
     Route: 048

REACTIONS (2)
  - Lung neoplasm malignant [Not Recovered/Not Resolved]
  - Chronic obstructive pulmonary disease [Not Recovered/Not Resolved]
